FAERS Safety Report 6359766-6 (Version None)
Quarter: 2009Q3

REPORT INFORMATION
  Report Type: 
  Country: None (occurrence: None)
  Receive Date: 20090917
  Receipt Date: 20090810
  Transmission Date: 20100115
  Serious: Yes (Hospitalization)
  Sender: FDA-Public Use
  Company Number: CH-ASTRAZENECA-2009SE12916

PATIENT
  Age: 77 Year
  Sex: Female

DRUGS (11)
  1. BELOC ZOK [Suspect]
     Route: 048
     Dates: end: 20090629
  2. NEXIUM [Concomitant]
     Route: 048
  3. LIQUAEMIN INJ [Concomitant]
     Route: 058
  4. PLAQUENIL [Concomitant]
     Indication: SYSTEMIC LUPUS ERYTHEMATOSUS
     Route: 048
     Dates: end: 20090629
  5. PREDNISONE [Concomitant]
     Indication: SYSTEMIC LUPUS ERYTHEMATOSUS
     Route: 048
  6. FOLIC ACID [Concomitant]
     Route: 048
  7. ENALAPRIL MALEATE [Concomitant]
     Route: 048
     Dates: end: 20090629
  8. ASPIRIN [Concomitant]
     Route: 048
  9. CALCIMAGON-D 3 [Concomitant]
     Route: 048
  10. REMERON [Concomitant]
     Route: 048
     Dates: end: 20090629
  11. FLUIMUCIL [Concomitant]
     Route: 048
     Dates: start: 20090615, end: 20090629

REACTIONS (1)
  - CARDIAC FAILURE [None]
